FAERS Safety Report 8050186-5 (Version None)
Quarter: 2012Q1

REPORT INFORMATION
  Report Type: 
  Country: None (occurrence: None)
  Receive Date: 20120111
  Receipt Date: 20111212
  Transmission Date: 20120608
  Serious: Yes (Hospitalization, Other)
  Sender: FDA-Public Use
  Company Number: 003-069

PATIENT
  Age: 42 Year
  Sex: Male

DRUGS (4)
  1. CROFAB [Suspect]
  2. GLUCOSAMINE [Concomitant]
  3. ATENOLOL [Concomitant]
  4. CROFAB [Suspect]
     Indication: SNAKE BITE
     Dosage: 13 VIALS TOTAL
     Dates: start: 20111117, end: 20111118

REACTIONS (9)
  - OEDEMA [None]
  - DIALYSIS [None]
  - SKIN NECROSIS [None]
  - RENAL FAILURE [None]
  - BLOOD GLUCOSE INCREASED [None]
  - CONDITION AGGRAVATED [None]
  - PLATELET COUNT DECREASED [None]
  - PAIN [None]
  - VOMITING [None]
